FAERS Safety Report 6035054-2 (Version None)
Quarter: 2009Q1

REPORT INFORMATION
  Report Type: 
  Country: None (occurrence: None)
  Receive Date: 20090112
  Receipt Date: 20081230
  Transmission Date: 20090719
  Serious: Yes (Hospitalization, Other)
  Sender: FDA-Public Use
  Company Number: US-PFIZER INC-2008155663

PATIENT
  Sex: Male
  Weight: 64.41 kg

DRUGS (7)
  1. VISTARIL [Suspect]
     Indication: DEPRESSION
  2. VISTARIL [Suspect]
     Indication: ANXIETY
  3. TRAZODONE HCL [Suspect]
  4. KLONOPIN [Suspect]
  5. SEROQUEL [Suspect]
  6. WELLBUTRIN [Suspect]
  7. PROZAC [Suspect]

REACTIONS (3)
  - CONDITION AGGRAVATED [None]
  - DEPRESSION [None]
  - SUICIDE ATTEMPT [None]
